FAERS Safety Report 20974572 (Version 1)
Quarter: 2022Q2

REPORT INFORMATION
  Report Type: Spontaneous
  Country: BE (occurrence: None)
  Receive Date: 20220617
  Receipt Date: 20220617
  Transmission Date: 20220721
  Serious: Yes (Death, Hospitalization, Other)
  Sender: FDA-Public Use
  Company Number: BE-MICRO LABS LIMITED-ML2022-02718

PATIENT
  Age: 24 Year
  Sex: Male

DRUGS (5)
  1. CLINDAMYCIN [Suspect]
     Active Substance: CLINDAMYCIN
     Indication: Antibiotic therapy
  2. CEFTRIAXONE [Suspect]
     Active Substance: CEFTRIAXONE
     Indication: Antibiotic therapy
  3. paracetamol. [Concomitant]
  4. IBUPROFEN [Concomitant]
     Active Substance: IBUPROFEN
  5. OXYMETAZOLINE [Concomitant]
     Active Substance: OXYMETAZOLINE

REACTIONS (9)
  - Drug ineffective [Fatal]
  - Septic shock [Fatal]
  - Disseminated intravascular coagulation [Fatal]
  - Cardiac failure [Fatal]
  - Renal failure [Fatal]
  - Hepatic failure [Fatal]
  - Respiratory failure [Fatal]
  - Beta haemolytic streptococcal infection [Fatal]
  - Soft tissue necrosis [Unknown]
